FAERS Safety Report 9736005 (Version 1)
Quarter: 2013Q4

REPORT INFORMATION
  Report Type: Spontaneous
  Country: US (occurrence: US)
  Receive Date: 20131206
  Receipt Date: 20131206
  Transmission Date: 20140711
  Serious: Yes (Other)
  Sender: FDA-Public Use
  Company Number: US-TEVA-449138USA

PATIENT
  Age: 49 Year
  Sex: Male

DRUGS (2)
  1. CLINDAMYCIN [Suspect]
     Indication: PROPHYLAXIS
     Route: 042
  2. GENTAMICIN [Suspect]
     Indication: PROPHYLAXIS
     Route: 042

REACTIONS (4)
  - Megacolon [Recovering/Resolving]
  - Metabolic acidosis [Recovering/Resolving]
  - Renal failure [Recovering/Resolving]
  - Pseudomembranous colitis [Unknown]
